FAERS Safety Report 5296682-5 (Version None)
Quarter: 2007Q2

REPORT INFORMATION
  Report Type: 
  Country: None (occurrence: None)
  Receive Date: 20070413
  Receipt Date: 20070406
  Transmission Date: 20071010
  Serious: Yes (Hospitalization, Other)
  Sender: FDA-Public Use
  Company Number: AU-ABBOTT-06P-008-0342130-00

PATIENT
  Age: 19 Year
  Sex: Male

DRUGS (14)
  1. VALPROATE SODIUM [Suspect]
     Indication: EPILEPSY
  2. VALPROATE SODIUM [Suspect]
     Dates: start: 19820601, end: 19830701
  3. VALPROATE SODIUM [Suspect]
     Dates: start: 19830701
  4. VALPROATE SODIUM [Suspect]
     Dates: start: 19830101, end: 19831106
  5. PHENYTOIN [Concomitant]
     Indication: CONVULSION PROPHYLAXIS
     Dates: end: 19830601
  6. PHENYTOIN [Concomitant]
     Dates: start: 19830701
  7. PHENYTOIN [Concomitant]
     Dates: start: 19830916
  8. PHENYTOIN [Concomitant]
     Dates: start: 19830101
  9. CARBAMAZEPINE [Concomitant]
     Indication: CONVULSION PROPHYLAXIS
     Dates: end: 19830701
  10. CARBAMAZEPINE [Concomitant]
     Dates: start: 19830701
  11. CARBAMAZEPINE [Concomitant]
     Dates: start: 19850101
  12. CLONAZEPAM [Concomitant]
     Indication: CONVULSION PROPHYLAXIS
     Dates: end: 19830701
  13. CLONAZEPAM [Concomitant]
     Dates: start: 19830701, end: 19831116
  14. CLONAZEPAM [Concomitant]
     Dates: start: 19831117

REACTIONS (4)
  - ABNORMAL BEHAVIOUR [None]
  - HEPATOTOXICITY [None]
  - MOUTH INJURY [None]
  - TOOTH INJURY [None]
